FAERS Safety Report 20315401 (Version 2)
Quarter: 2022Q1

REPORT INFORMATION
  Report Type: Spontaneous
  Country: US (occurrence: US)
  Receive Date: 20220110
  Receipt Date: 20220121
  Transmission Date: 20220423
  Serious: No
  Sender: FDA-Public Use
  Company Number: US-TEVA-2021-US-1995815

PATIENT
  Age: 45 Year
  Sex: Female
  Weight: 135.62 kg

DRUGS (2)
  1. CEPHALEXIN [Suspect]
     Active Substance: CEPHALEXIN
     Route: 065
     Dates: start: 20211224
  2. BACTRIM [Suspect]
     Active Substance: SULFAMETHOXAZOLE\TRIMETHOPRIM
     Indication: Infection
     Dosage: 800/160MG
     Route: 065
     Dates: start: 20211224

REACTIONS (1)
  - Drug ineffective [Unknown]

NARRATIVE: CASE EVENT DATE: 20211201
